FAERS Safety Report 8031515-5 (Version None)
Quarter: 2012Q1

REPORT INFORMATION
  Report Type: 
  Country: None (occurrence: None)
  Receive Date: 20120109
  Receipt Date: 20111227
  Transmission Date: 20120608
  Serious: Yes (Hospitalization)
  Sender: FDA-Public Use
  Company Number: FR-MYLANLABS-2011S1026352

PATIENT
  Age: 74 Year
  Sex: Female

DRUGS (20)
  1. CARBOPLATIN [Suspect]
     Dates: start: 20110908
  2. PACLITAXEL [Suspect]
     Route: 042
     Dates: start: 20110817
  3. DIGOXIN [Concomitant]
  4. DIAMICRON [Concomitant]
  5. CARBOPLATIN [Suspect]
     Indication: LUNG ADENOCARCINOMA
     Dates: start: 20110810
  6. PACLITAXEL [Suspect]
     Indication: LUNG ADENOCARCINOMA
     Route: 042
     Dates: start: 20110810
  7. VOLTAREN [Concomitant]
  8. LASIX [Concomitant]
  9. PACLITAXEL [Suspect]
     Route: 042
     Dates: start: 20110908
  10. LYRICA [Concomitant]
  11. PLAVIX [Concomitant]
  12. MORPHINE SULFATE [Concomitant]
  13. PLAQUENIL [Concomitant]
  14. ACETAMINOPHEN AND TRAMADOL HCL [Concomitant]
  15. METHYLPREDNISOLONE [Suspect]
  16. CLONAZEPAM [Concomitant]
  17. CORDARONE [Concomitant]
  18. AMLODIPINE BESYLATE [Concomitant]
  19. XOLAAM [Concomitant]
  20. NEXIUM [Concomitant]

REACTIONS (2)
  - CONFUSIONAL STATE [None]
  - DELIRIUM [None]
